FAERS Safety Report 18916247 (Version 2)
Quarter: 2025Q3

REPORT INFORMATION
  Report Type: Spontaneous
  Country: EU (occurrence: EU)
  Receive Date: 20210218
  Receipt Date: 20250909
  Transmission Date: 20251021
  Serious: Yes (Hospitalization, Disabling)
  Sender: ABBVIE
  Company Number: EU-ABBVIE-21K-129-3778799-00

PATIENT
  Age: 64 Year
  Sex: Male

DRUGS (3)
  1. VENETOCLAX [Suspect]
     Active Substance: VENETOCLAX
     Indication: Chronic lymphocytic leukaemia
     Route: 048
     Dates: start: 20200302
  2. RAMIPRIL [Concomitant]
     Active Substance: RAMIPRIL
     Indication: Hypertension
  3. REMDESIVIR [Concomitant]
     Active Substance: REMDESIVIR
     Indication: Product used for unknown indication
     Dates: start: 202101

REACTIONS (4)
  - COVID-19 [Unknown]
  - Infection [Unknown]
  - Cerebrovascular accident [Unknown]
  - Paresis [Unknown]

NARRATIVE: CASE EVENT DATE: 20210101
